FAERS Safety Report 5425392-6 (Version None)
Quarter: 2007Q3

REPORT INFORMATION
  Report Type: 
  Country: None (occurrence: None)
  Receive Date: 20070824
  Receipt Date: 20070824
  Transmission Date: 20080115
  Serious: Yes (Hospitalization)
  Sender: FDA-Public Use
  Company Number: DE-ROXANE LABORATORIES, INC-2007-DE-04913GD

PATIENT
  Age: 43 Year
  Sex: Male

DRUGS (5)
  1. OXAZEPAM [Suspect]
  2. DIAZEPAM [Suspect]
  3. DOXEPIN HCL [Suspect]
  4. CLOMETHIAZOLE [Suspect]
  5. METOPROLOL SUCCINATE [Suspect]

REACTIONS (2)
  - DRUG TOXICITY [None]
  - SOMNOLENCE [None]
